FAERS Safety Report 15926843 (Version 2)
Quarter: 2019Q1

REPORT INFORMATION
  Report Type: Spontaneous
  Country: US (occurrence: US)
  Receive Date: 20190205
  Receipt Date: 20190219
  Transmission Date: 20190417
  Serious: No
  Sender: FDA-Public Use
  Company Number: US-ALLERGAN-1853304US

PATIENT
  Sex: Female

DRUGS (2)
  1. BOTOX [Suspect]
     Active Substance: ONABOTULINUMTOXINA
     Indication: PRODUCT USED FOR UNKNOWN INDICATION
     Dosage: UNK, SINGLE
     Route: 030
     Dates: start: 20180405, end: 20180405
  2. JUVEDERM VOLLURE [Concomitant]
     Indication: SKIN WRINKLING
     Dosage: UNK, SINGLE
     Route: 065

REACTIONS (2)
  - Rash [Not Recovered/Not Resolved]
  - Contusion [Unknown]
